FAERS Safety Report 23083195 (Version 1)
Quarter: 2023Q4

REPORT INFORMATION
  Report Type: Spontaneous
  Country: US (occurrence: US)
  Receive Date: 20231019
  Receipt Date: 20231019
  Transmission Date: 20240110
  Serious: Yes (Other)
  Sender: FDA-Public Use
  Company Number: US-AVADEL CNS PHARMACEUTICALS, LLC-2023AVA00250

PATIENT
  Age: 47 Year
  Sex: Female

DRUGS (5)
  1. SODIUM OXYBATE [Suspect]
     Active Substance: SODIUM OXYBATE
     Indication: Psychotic symptom
  2. SERTRALINE [Concomitant]
     Active Substance: SERTRALINE HYDROCHLORIDE
     Indication: Psychiatric symptom
  3. ARIPIPRAZOLE [Concomitant]
     Active Substance: ARIPIPRAZOLE
     Indication: Psychiatric symptom
  4. TOPIRAMATE [Concomitant]
     Active Substance: TOPIRAMATE
     Indication: Psychiatric symptom
  5. SOLRIAMFETOL [Concomitant]
     Active Substance: SOLRIAMFETOL
     Dosage: UNK, 1X/DAY

REACTIONS (1)
  - Electrocardiogram QT prolonged [Unknown]
